FAERS Safety Report 5106775-0 (Version None)
Quarter: 2006Q3

REPORT INFORMATION
  Report Type: 
  Country: None (occurrence: None)
  Receive Date: 20060731
  Receipt Date: 20050902
  Transmission Date: 20061208
  Serious: Yes (Other)
  Sender: FDA-Public Use
  Company Number: US-JNJFOC-20050901441

PATIENT
  Age: 90 Year
  Sex: Male
  Weight: 72.5755 kg

DRUGS (8)
  1. RISPERDAL [Suspect]
     Indication: AGGRESSION
     Dosage: 0.25 MG, IN 1 DAY, ORAL
     Route: 048
     Dates: start: 20050621, end: 20050827
  2. RISPERDAL [Suspect]
     Indication: PARANOIA
     Dosage: 0.25 MG, IN 1 DAY, ORAL
     Route: 048
     Dates: start: 20050621, end: 20050827
  3. NITRO PATCH (GLYCERYL TRINITRATE) PATCH [Concomitant]
  4. ASPIRIN [Concomitant]
  5. FOLIC ACID [Concomitant]
  6. ARACEPT (DONEPEZIL HYDROCHLORIDE) [Concomitant]
  7. DILANTIN [Concomitant]
  8. MULTIVITAMIN [Concomitant]

REACTIONS (15)
  - CHEST PAIN [None]
  - CONFUSIONAL STATE [None]
  - DEHYDRATION [None]
  - DEPRESSED LEVEL OF CONSCIOUSNESS [None]
  - DYSPHONIA [None]
  - FACIAL PALSY [None]
  - FAECAL INCONTINENCE [None]
  - GAIT DISTURBANCE [None]
  - HYPERSOMNIA [None]
  - MUSCLE TWITCHING [None]
  - RESPIRATORY TRACT INFECTION [None]
  - RHINORRHOEA [None]
  - STARING [None]
  - TRANSIENT ISCHAEMIC ATTACK [None]
  - URINARY INCONTINENCE [None]
